FAERS Safety Report 9028555 (Version 1)
Quarter: 2013Q1

REPORT INFORMATION
  Report Type: Report from Study
  Country: US (occurrence: US)
  Receive Date: 20130124
  Receipt Date: 20130124
  Transmission Date: 20140127
  Serious: Yes (Hospitalization)
  Sender: FDA-Public Use
  Company Number: US-ABBOTT-13P-163-1038732-00

PATIENT
  Age: 68 Year
  Sex: Male
  Weight: 101.7 kg

DRUGS (3)
  1. HUMIRA [Suspect]
     Indication: RHEUMATOID ARTHRITIS
     Dates: start: 201212
  2. UNKNOWN INSULIN INJECTIONS [Concomitant]
     Indication: DIABETES MELLITUS
     Dosage: IN THE AM
  3. UNKNOWN BLOOD PRESSURE MEDICATIONS [Concomitant]
     Indication: BLOOD PRESSURE

REACTIONS (6)
  - Headache [Not Recovered/Not Resolved]
  - Chest pain [Not Recovered/Not Resolved]
  - Hypertension [Unknown]
  - Hyperhidrosis [Unknown]
  - Dyspnoea [Unknown]
  - Insomnia [Unknown]
